FAERS Safety Report 9198377 (Version 1)
Quarter: 2013Q1

REPORT INFORMATION
  Report Type: Spontaneous
  Country: US (occurrence: None)
  Receive Date: 20130327
  Receipt Date: 20130327
  Transmission Date: 20140127
  Serious: Yes (Life-Threatening)
  Sender: FDA-Public Use
  Company Number: None

PATIENT
  Age: 26 Year
  Sex: Female
  Weight: 88 kg

DRUGS (1)
  1. DEPO PROVERA [Suspect]
     Indication: CONTRACEPTION
     Dates: start: 2004, end: 2009

REACTIONS (3)
  - Abdominal pain [None]
  - Pulmonary thrombosis [None]
  - Accident [None]
